FAERS Safety Report 7391066-8 (Version None)
Quarter: 2011Q2

REPORT INFORMATION
  Report Type: 
  Country: None (occurrence: None)
  Receive Date: 20110404
  Receipt Date: 20110323
  Transmission Date: 20111010
  Serious: Yes (Death, Hospitalization)
  Sender: FDA-Public Use
  Company Number: FR-CELGENEUS-056-C5013-11021769

PATIENT
  Sex: Female
  Weight: 63 kg

DRUGS (21)
  1. DEXAMETHASONE [Suspect]
     Indication: MULTIPLE MYELOMA
     Dosage: 40 MILLIGRAM
     Route: 065
     Dates: start: 20100203
  2. TAHOR [Concomitant]
     Indication: HYPERTENSION
     Dosage: 10 MILLIGRAM
     Route: 048
     Dates: start: 20070101
  3. GAVISCON [Concomitant]
     Route: 065
  4. DEXAMETHASONE [Suspect]
     Dosage: 25 MILLIGRAM
     Route: 065
     Dates: start: 20110128, end: 20110213
  5. CIFLOX [Concomitant]
     Route: 065
  6. TIORFAN [Concomitant]
     Route: 048
     Dates: start: 20110117, end: 20110125
  7. DIFFU K [Concomitant]
     Route: 065
  8. LENALIDOMIDE [Suspect]
     Indication: MULTIPLE MYELOMA
     Dosage: 25 MILLIGRAM
     Route: 048
     Dates: start: 20100203
  9. TAZOCIN [Concomitant]
     Indication: SEPTIC SHOCK
     Route: 051
     Dates: start: 20100421, end: 20100430
  10. LOVENOX [Concomitant]
     Indication: THROMBOSIS PROPHYLAXIS
     Dosage: 4000 IU (INTERNATIONAL UNIT)
     Route: 058
     Dates: start: 20110202
  11. IRBESARTAN [Concomitant]
     Indication: HYPERTENSION
     Dosage: 150 MILLIGRAM
     Route: 048
     Dates: start: 20050801
  12. AMLODIPINE BESYLATE [Concomitant]
     Dosage: 5 MILLIGRAM
     Route: 048
  13. PREVISCAN [Concomitant]
     Dosage: .5 DOSAGE FORMS
     Route: 048
  14. MODANE [Concomitant]
     Route: 065
  15. GLUCOPHAGE [Concomitant]
     Dosage: 1000 MILLIGRAM
     Route: 048
     Dates: start: 20070201
  16. CIFLOX [Concomitant]
     Indication: SEPTIC SHOCK
     Route: 051
     Dates: start: 20100421, end: 20100430
  17. LENALIDOMIDE [Suspect]
     Dosage: 25 MILLIGRAM
     Route: 048
     Dates: start: 20110128, end: 20110213
  18. DIAMICRON [Concomitant]
     Route: 048
     Dates: start: 20070101
  19. NEXIUM [Concomitant]
     Dosage: 20 MILLIGRAM
     Route: 048
  20. PARACETAMOL [Concomitant]
     Route: 065
  21. ORELOX [Concomitant]
     Route: 065

REACTIONS (2)
  - SEPTIC SHOCK [None]
  - PNEUMONIA [None]
